FAERS Safety Report 5675460-9 (Version None)
Quarter: 2008Q2

REPORT INFORMATION
  Report Type: 
  Country: None (occurrence: None)
  Receive Date: 20080311
  Receipt Date: 20070328
  Transmission Date: 20081010
  Serious: Yes (Other)
  Sender: FDA-Public Use
  Company Number: PHEH2006US14522

PATIENT
  Age: 50 Year
  Sex: Male
  Weight: 102.9 kg

DRUGS (7)
  1. TRILEPTAL [Suspect]
     Indication: BIPOLAR DISORDER
     Dosage: 900 MG, BID, ORAL; 300 MG, BID, ORAL; 900 MG, BID, ORAL
     Route: 048
     Dates: end: 20061118
  2. TRILEPTAL [Suspect]
     Indication: BIPOLAR DISORDER
     Dosage: 900 MG, BID, ORAL; 300 MG, BID, ORAL; 900 MG, BID, ORAL
     Route: 048
     Dates: start: 20060622
  3. EFFEXOR XR [Concomitant]
  4. REMERON [Concomitant]
  5. AMBIEN [Concomitant]
  6. SEROQUEL [Concomitant]
  7. PANTOPRAZOLE SODIUM [Concomitant]

REACTIONS (10)
  - ABDOMINAL PAIN UPPER [None]
  - BLOOD TRIGLYCERIDES INCREASED [None]
  - DYSARTHRIA [None]
  - FALL [None]
  - FEELING ABNORMAL [None]
  - GAIT DISTURBANCE [None]
  - LIPASE INCREASED [None]
  - PANCREATITIS ACUTE [None]
  - POLYP [None]
  - RASH [None]
